FAERS Safety Report 8885928 (Version 1)
Quarter: 2012Q4

REPORT INFORMATION
  Report Type: Report from Study
  Country: FR (occurrence: FR)
  Receive Date: 20121105
  Receipt Date: 20121105
  Transmission Date: 20130627
  Serious: Yes (Hospitalization, Other)
  Sender: FDA-Public Use
  Company Number: PHHO2011FR01399

PATIENT
  Age: 60 Year
  Sex: Male
  Weight: 99 kg

DRUGS (15)
  1. ESIDREX [Suspect]
  2. PLACEBO [Suspect]
     Indication: CARDIAC FAILURE ACUTE
     Route: 048
     Dates: end: 20100809
  3. COVERSYL [Concomitant]
  4. INSPRA [Concomitant]
  5. DIGOXIN [Concomitant]
  6. TAHOR [Concomitant]
  7. COUMADIN [Concomitant]
  8. KARDEGIC [Concomitant]
  9. CARDENSIEL [Concomitant]
  10. TARDYFERON [Concomitant]
  11. LEVEMIR [Concomitant]
  12. APIDRA [Concomitant]
  13. LASILIX [Concomitant]
  14. DIFFU K [Concomitant]
  15. ALLOPURINOL [Concomitant]

REACTIONS (11)
  - Dehydration [Recovering/Resolving]
  - Renal failure [Unknown]
  - Hyponatraemia [Unknown]
  - Asthenia [Unknown]
  - Diabetes mellitus inadequate control [Unknown]
  - Decreased appetite [Unknown]
  - General physical health deterioration [Unknown]
  - Pollakiuria [Unknown]
  - Weight decreased [Unknown]
  - Anaemia [Unknown]
  - Iron deficiency [Unknown]
